FAERS Safety Report 19066573 (Version 2)
Quarter: 2021Q3

REPORT INFORMATION
  Report Type: Spontaneous
  Country: US (occurrence: US)
  Receive Date: 20210328
  Receipt Date: 20210802
  Transmission Date: 20211014
  Serious: Yes (Life-Threatening, Hospitalization)
  Sender: FDA-Public Use
  Company Number: US-TEVA-2021-US-1893788

PATIENT
  Age: 75 Year
  Sex: Male

DRUGS (32)
  1. GABAPENTIN. [Suspect]
     Active Substance: GABAPENTIN
     Indication: ANGIOPATHY
  2. DROXIDOPA [Suspect]
     Active Substance: DROXIDOPA
     Indication: SHOCK
  3. GABAPENTIN. [Suspect]
     Active Substance: GABAPENTIN
     Indication: SHOCK
  4. MEXILETINE [Suspect]
     Active Substance: MEXILETINE
     Indication: ANGIOPATHY
  5. PSEUDOEPHEDRINE. [Suspect]
     Active Substance: PSEUDOEPHEDRINE HYDROCHLORIDE
     Indication: SHOCK
  6. THERMOTABS [DIETARY SUPPLEMENT] [Suspect]
     Active Substance: DIETARY SUPPLEMENT
     Indication: HAEMODYNAMIC INSTABILITY
  7. CARBAMAZEPINE. [Suspect]
     Active Substance: CARBAMAZEPINE
     Indication: SHOCK
  8. GABAPENTIN. [Suspect]
     Active Substance: GABAPENTIN
     Indication: HAEMODYNAMIC INSTABILITY
  9. MEXILETINE [Suspect]
     Active Substance: MEXILETINE
     Indication: GLOSSOPHARYNGEAL NEURALGIA
     Route: 065
     Dates: start: 2019
  10. PYRIDOSTIGMINE [Suspect]
     Active Substance: PYRIDOSTIGMINE
     Indication: ANGIOPATHY
  11. PSEUDOEPHEDRINE. [Suspect]
     Active Substance: PSEUDOEPHEDRINE HYDROCHLORIDE
     Indication: HAEMODYNAMIC INSTABILITY
  12. CARBAMAZEPINE. [Suspect]
     Active Substance: CARBAMAZEPINE
     Indication: GLOSSOPHARYNGEAL NEURALGIA
     Route: 065
     Dates: start: 2019
  13. FLUDROCORTISONE [Suspect]
     Active Substance: FLUDROCORTISONE
     Indication: GLOSSOPHARYNGEAL NEURALGIA
     Route: 065
     Dates: start: 2019
  14. DROXIDOPA [Suspect]
     Active Substance: DROXIDOPA
     Indication: GLOSSOPHARYNGEAL NEURALGIA
     Route: 065
     Dates: start: 2019
  15. DROXIDOPA [Suspect]
     Active Substance: DROXIDOPA
     Indication: HAEMODYNAMIC INSTABILITY
  16. THERMOTABS [DIETARY SUPPLEMENT] [Suspect]
     Active Substance: DIETARY SUPPLEMENT
     Indication: SHOCK
  17. MEXILETINE [Suspect]
     Active Substance: MEXILETINE
     Indication: HAEMODYNAMIC INSTABILITY
  18. FLUDROCORTISONE [Suspect]
     Active Substance: FLUDROCORTISONE
     Indication: ANGIOPATHY
  19. PYRIDOSTIGMINE [Suspect]
     Active Substance: PYRIDOSTIGMINE
     Indication: GLOSSOPHARYNGEAL NEURALGIA
     Route: 065
     Dates: start: 2019
  20. PSEUDOEPHEDRINE. [Suspect]
     Active Substance: PSEUDOEPHEDRINE HYDROCHLORIDE
     Indication: GLOSSOPHARYNGEAL NEURALGIA
     Route: 065
     Dates: start: 2019
  21. PSEUDOEPHEDRINE. [Suspect]
     Active Substance: PSEUDOEPHEDRINE HYDROCHLORIDE
     Indication: ANGIOPATHY
  22. MEXILETINE [Suspect]
     Active Substance: MEXILETINE
     Indication: SHOCK
  23. FLUDROCORTISONE [Suspect]
     Active Substance: FLUDROCORTISONE
     Indication: HAEMODYNAMIC INSTABILITY
  24. CARBAMAZEPINE. [Suspect]
     Active Substance: CARBAMAZEPINE
     Indication: HAEMODYNAMIC INSTABILITY
  25. CARBAMAZEPINE. [Suspect]
     Active Substance: CARBAMAZEPINE
     Indication: ANGIOPATHY
  26. PYRIDOSTIGMINE [Suspect]
     Active Substance: PYRIDOSTIGMINE
     Indication: HAEMODYNAMIC INSTABILITY
  27. DROXIDOPA [Suspect]
     Active Substance: DROXIDOPA
     Indication: ANGIOPATHY
  28. THERMOTABS [DIETARY SUPPLEMENT] [Suspect]
     Active Substance: DIETARY SUPPLEMENT
     Indication: GLOSSOPHARYNGEAL NEURALGIA
     Route: 065
     Dates: start: 2019
  29. THERMOTABS [DIETARY SUPPLEMENT] [Suspect]
     Active Substance: DIETARY SUPPLEMENT
     Indication: ANGIOPATHY
  30. GABAPENTIN. [Suspect]
     Active Substance: GABAPENTIN
     Indication: GLOSSOPHARYNGEAL NEURALGIA
     Route: 065
     Dates: start: 2019
  31. FLUDROCORTISONE [Suspect]
     Active Substance: FLUDROCORTISONE
     Indication: SHOCK
  32. PYRIDOSTIGMINE [Suspect]
     Active Substance: PYRIDOSTIGMINE
     Indication: SHOCK

REACTIONS (1)
  - Treatment failure [Unknown]

NARRATIVE: CASE EVENT DATE: 2019
